FAERS Safety Report 4382063-5 (Version None)
Quarter: 2004Q2

REPORT INFORMATION
  Report Type: 
  Country: None (occurrence: None)
  Receive Date: 20040603
  Receipt Date: 20030411
  Transmission Date: 20050107
  Serious: Yes (Other)
  Sender: FDA-Public Use
  Company Number: 200313459US

PATIENT

DRUGS (1)
  1. HEPARIN-FRACTION, SODIUM SALT (LEVENOX) SOLUTION FOR INJECTION [Suspect]
     Dosage: SC
     Route: 058

REACTIONS (1)
  - INTRA-ABDOMINAL HAEMORRHAGE [None]
